FAERS Safety Report 5851875-0 (Version None)
Quarter: 2008Q3

REPORT INFORMATION
  Report Type: 
  Country: None (occurrence: None)
  Receive Date: 20080819
  Receipt Date: 20080813
  Transmission Date: 20090109
  Serious: Yes (Disabling)
  Sender: FDA-Public Use
  Company Number: 2008-02682

PATIENT
  Age: 60 Year
  Sex: Male
  Weight: 78 kg

DRUGS (6)
  1. VELCADE [Suspect]
     Indication: DRUG USE FOR UNKNOWN INDICATION
     Dosage: 1 MG/M2, UNK, UNK
     Dates: start: 20080515
  2. UNSPECIFIED STEROIDS [Concomitant]
  3. SODIUM CLODRONATE [Concomitant]
  4. ACYCLOVIR [Concomitant]
  5. BISOPROLOL FUMARATE [Concomitant]
  6. ERYTHROPOIETIN (ERYTHROPOIETIN) [Concomitant]

REACTIONS (4)
  - OSTEOARTHRITIS [None]
  - RENAL IMPAIRMENT [None]
  - ROTATOR CUFF SYNDROME [None]
  - TENOSYNOVITIS [None]
